FAERS Safety Report 7373127-2 (Version None)
Quarter: 2011Q1

REPORT INFORMATION
  Report Type: 
  Country: None (occurrence: None)
  Receive Date: 20110324
  Receipt Date: 20110317
  Transmission Date: 20110831
  Serious: Yes (Other)
  Sender: FDA-Public Use
  Company Number: US-PURDUE-USA-2010-0060467

PATIENT
  Age: 84 Year
  Sex: Female
  Weight: 69.388 kg

DRUGS (3)
  1. COLACE CAPSULES 100 MG [Suspect]
     Indication: CONSTIPATION
     Dosage: 100 MG, PRN
     Route: 048
  2. COLACE CAPSULES 100 MG [Suspect]
     Indication: FAECES HARD
  3. ASPIRIN [Concomitant]
     Indication: PRODUCT USED FOR UNKNOWN INDICATION
     Dosage: UNK UNK, PRN

REACTIONS (9)
  - LARYNGITIS [None]
  - WHEEZING [None]
  - THROAT IRRITATION [None]
  - PHARYNGITIS [None]
  - FOREIGN BODY [None]
  - INCREASED UPPER AIRWAY SECRETION [None]
  - CAPSULE PHYSICAL ISSUE [None]
  - COUGH [None]
  - BRONCHITIS [None]
